FAERS Safety Report 25312453 (Version 8)
Quarter: 2025Q3

REPORT INFORMATION
  Report Type: Report from Study
  Country: US (occurrence: US)
  Receive Date: 20250514
  Receipt Date: 20250918
  Transmission Date: 20251021
  Serious: Yes (Hospitalization, Other)
  Sender: TAKEDA
  Company Number: US-TAKEDA-2025TUS043854

PATIENT
  Sex: Female

DRUGS (2)
  1. VEDOLIZUMAB [Suspect]
     Active Substance: VEDOLIZUMAB
     Indication: Crohn^s disease
  2. VEDOLIZUMAB [Suspect]
     Active Substance: VEDOLIZUMAB
     Dosage: 300 MILLIGRAM, Q6WEEKS

REACTIONS (12)
  - Staphylococcal bacteraemia [Not Recovered/Not Resolved]
  - Impaired gastric emptying [Unknown]
  - Vascular device infection [Unknown]
  - Off label use [Unknown]
  - Product dose omission issue [Unknown]
  - Illness [Unknown]
  - Liver disorder [Unknown]
  - Blood potassium abnormal [Unknown]
  - Weight decreased [Unknown]
  - Inappropriate schedule of product administration [Unknown]
  - Dysphonia [Unknown]
  - Vomiting [Unknown]
